FAERS Safety Report 24998395 (Version 2)
Quarter: 2025Q2

REPORT INFORMATION
  Report Type: Spontaneous
  Country: US (occurrence: US)
  Receive Date: 20250222
  Receipt Date: 20250510
  Transmission Date: 20250716
  Serious: No
  Sender: SANOFI AVENTIS
  Company Number: US-SA-2025SA048107

PATIENT
  Sex: Male

DRUGS (17)
  1. DUPIXENT [Suspect]
     Active Substance: DUPILUMAB
     Indication: Dermatitis atopic
     Dosage: 300 MG, QOW
     Route: 058
  2. CLONAZEPAM [Concomitant]
     Active Substance: CLONAZEPAM
  3. DULOXETINE HYDROCHLORIDE [Concomitant]
     Active Substance: DULOXETINE HYDROCHLORIDE
  4. HUMULIN R [Concomitant]
     Active Substance: INSULIN HUMAN
  5. ISOSORBIDE DINITRATE [Concomitant]
     Active Substance: ISOSORBIDE DINITRATE
  6. KETOCONAZOLE [Concomitant]
     Active Substance: KETOCONAZOLE
  7. MECLIZINE HYDROCHLORIDE [Concomitant]
     Active Substance: MECLIZINE HYDROCHLORIDE
  8. METHIMAZOLE [Concomitant]
     Active Substance: METHIMAZOLE
  9. METOPROLOL TARTRATE [Concomitant]
     Active Substance: METOPROLOL TARTRATE
  10. OMEPRAZOLE [Concomitant]
     Active Substance: OMEPRAZOLE
  11. OXYCODONE AND ACETAMINOPHEN [Concomitant]
     Active Substance: ACETAMINOPHEN\OXYCODONE HYDROCHLORIDE
  12. TAMSULOSIN HYDROCHLORIDE [Concomitant]
     Active Substance: TAMSULOSIN HYDROCHLORIDE
  13. XARELTO [Concomitant]
     Active Substance: RIVAROXABAN
  14. REPATHA [Concomitant]
     Active Substance: EVOLOCUMAB
  15. LINZESS [Concomitant]
     Active Substance: LINACLOTIDE
  16. VITAMIN D3 [Concomitant]
     Active Substance: CHOLECALCIFEROL
  17. VITAMIN B12 [Concomitant]
     Active Substance: CYANOCOBALAMIN

REACTIONS (5)
  - Blister [Recovered/Resolved]
  - Burning sensation [Recovered/Resolved]
  - Pain [Recovered/Resolved]
  - Rash [Not Recovered/Not Resolved]
  - Therapeutic response shortened [Not Recovered/Not Resolved]
